FAERS Safety Report 5465872-0 (Version None)
Quarter: 2007Q3

REPORT INFORMATION
  Report Type: 
  Country: None (occurrence: None)
  Receive Date: 20070924
  Receipt Date: 20070912
  Transmission Date: 20080115
  Serious: Yes (Death, Hospitalization)
  Sender: FDA-Public Use
  Company Number: GB-ELI_LILLY_AND_COMPANY-GB200707006169

PATIENT
  Age: 65 Year
  Sex: Male

DRUGS (5)
  1. ALIMTA [Suspect]
     Indication: MESOTHELIOMA
  2. VITAMIN B-12 [Concomitant]
  3. FOLIC ACID [Concomitant]
  4. CISPLATIN [Concomitant]
  5. CORTICOSTEROIDS [Concomitant]
     Dosage: UNK, UNKNOWN
     Route: 065

REACTIONS (4)
  - DEATH [None]
  - DEPRESSED LEVEL OF CONSCIOUSNESS [None]
  - PLEURITIC PAIN [None]
  - SOMNOLENCE [None]
